FAERS Safety Report 4640484-7 (Version None)
Quarter: 2005Q2

REPORT INFORMATION
  Report Type: 
  Country: None (occurrence: None)
  Receive Date: 20050419
  Receipt Date: 20050408
  Transmission Date: 20051028
  Serious: Yes (Hospitalization, Other)
  Sender: FDA-Public Use
  Company Number: KII-2005-0015975

PATIENT
  Age: 30 Year
  Sex: Male

DRUGS (1)
  1. OXYCONTIN [Suspect]
     Dosage: PARENTERAL
     Route: 051

REACTIONS (8)
  - AGGRESSION [None]
  - AGITATION [None]
  - COMA [None]
  - DRUG ABUSER [None]
  - INCORRECT ROUTE OF DRUG ADMINISTRATION [None]
  - LETHARGY [None]
  - RHABDOMYOLYSIS [None]
  - SOMNOLENCE [None]
